FAERS Safety Report 4588382-1 (Version None)
Quarter: 2005Q1

REPORT INFORMATION
  Report Type: 
  Country: None (occurrence: None)
  Receive Date: 20050222
  Receipt Date: 20050127
  Transmission Date: 20050727
  Serious: Yes (Other)
  Sender: FDA-Public Use
  Company Number: GB-JNJFOC-20050107147

PATIENT
  Sex: Male
  Weight: 27.7 kg

DRUGS (3)
  1. TOPAMAX [Suspect]
     Indication: EPILEPSY
     Route: 049
  2. VALPROATE SODIUM [Concomitant]
     Route: 065
  3. VALLERGAN [Concomitant]
     Route: 065

REACTIONS (1)
  - TREMOR [None]
